FAERS Safety Report 20755439 (Version 1)
Quarter: 2022Q2

REPORT INFORMATION
  Report Type: Spontaneous
  Country: CA (occurrence: CA)
  Receive Date: 20220427
  Receipt Date: 20220427
  Transmission Date: 20220721
  Serious: Yes (Other)
  Sender: FDA-Public Use
  Company Number: CA-CELLTRION INC.-2022CA004914

PATIENT

DRUGS (7)
  1. INFLIXIMAB [Suspect]
     Active Substance: INFLIXIMAB
     Indication: Emphysematous cystitis
     Dosage: INFLIXIMAB INDUCTION THERAPY
  2. INFLIXIMAB [Suspect]
     Active Substance: INFLIXIMAB
     Indication: Crohn^s disease
     Dosage: MAINTENANCE INFLIXIMAB INFUSIONS
  3. ALBUMIN HUMAN [Suspect]
     Active Substance: ALBUMIN HUMAN
     Indication: Product used for unknown indication
     Dosage: THROUGHOUT HER ADMISSION, SHE ALSO RECEIVED MULTIPLE UNITS OF PACKED RED BLOOD CELLS AND IV ALBUMIN
     Route: 042
  4. PREDNISONE [Suspect]
     Active Substance: PREDNISONE
     Indication: Emphysematous cystitis
     Dosage: TAPERING DOSE
     Route: 048
  5. PREDNISONE [Suspect]
     Active Substance: PREDNISONE
     Indication: Crohn^s disease
  6. UNSPECIFIED INGREDIENT [Concomitant]
     Active Substance: UNSPECIFIED INGREDIENT
     Indication: Emphysematous cystitis
     Dosage: INTRAVENOUS THIRD-GENERATION CEPHALOSPHORIN FOR FIVE DAYS DESPITE NO OBVIOUS INFECTIOUS ETIOLOGY
     Route: 042
  7. METHYLPREDNISOLONE [Concomitant]
     Active Substance: METHYLPREDNISOLONE
     Route: 042

REACTIONS (3)
  - Large intestine perforation [Recovered/Resolved]
  - Pre-existing condition improved [Unknown]
  - Off label use [Unknown]
